FAERS Safety Report 4433812-9 (Version None)
Quarter: 2004Q3

REPORT INFORMATION
  Report Type: 
  Country: None (occurrence: None)
  Receive Date: 20040824
  Receipt Date: 20040824
  Transmission Date: 20050211
  Serious: Yes (Disabling)
  Sender: FDA-Public Use
  Company Number: None

PATIENT
  Age: 59 Year
  Sex: Female
  Weight: 49.8957 kg

DRUGS (4)
  1. RISPERDAL [Suspect]
     Indication: ANXIETY
     Dosage: 1/4-1/2   QHS   ORAL
     Route: 048
     Dates: start: 20040601, end: 20040721
  2. RISPERDAL [Suspect]
     Indication: DEPRESSION
     Dosage: 1/4-1/2   QHS   ORAL
     Route: 048
     Dates: start: 20040601, end: 20040721
  3. LIBRIUM [Concomitant]
  4. NORTRYPTILINE [Concomitant]

REACTIONS (3)
  - VISION BLURRED [None]
  - VITREOUS DETACHMENT [None]
  - VITREOUS FLOATERS [None]
